FAERS Safety Report 24540565 (Version 1)
Quarter: 2024Q4

REPORT INFORMATION
  Report Type: Spontaneous
  Country: US (occurrence: None)
  Receive Date: 20241023
  Receipt Date: 20241023
  Transmission Date: 20250115
  Serious: No
  Sender: Public
  Company Number: None

PATIENT
  Age: 82 Year
  Sex: Male

DRUGS (5)
  1. KETOCONAZOLE [Suspect]
     Active Substance: KETOCONAZOLE
     Dosage: SHAMPOO  AS NEEDED  APPLIED TO SURFCE USUALLY THE SKIN
  2. KETOCONAZOLE CREAM, 2% [Suspect]
     Active Substance: KETOCONAZOLE
     Indication: Fungal infection
     Dates: start: 20240901, end: 20241008
  3. RAMIPRIL [Concomitant]
  4. ATORVASTATIN [Concomitant]
  5. EZETIMIBE [Concomitant]

REACTIONS (1)
  - Balance disorder [None]

NARRATIVE: CASE EVENT DATE: 20240901
